FAERS Safety Report 20015912 (Version 1)
Quarter: 2021Q4

REPORT INFORMATION
  Report Type: Spontaneous
  Country: US (occurrence: None)
  Receive Date: 20211102
  Receipt Date: 20211102
  Transmission Date: 20220303
  Serious: Yes (Hospitalization, Other)
  Sender: FDA-Public Use
  Company Number: None

PATIENT
  Age: 12 Year
  Sex: Male
  Weight: 38.25 kg

DRUGS (4)
  1. CONCERTA [Suspect]
     Active Substance: METHYLPHENIDATE HYDROCHLORIDE
     Indication: Attention deficit hyperactivity disorder
     Route: 048
     Dates: start: 20210901, end: 20211102
  2. CONCERTA [Concomitant]
     Active Substance: METHYLPHENIDATE HYDROCHLORIDE
  3. TRAZEDONE [Concomitant]
  4. PROPENELOL [Concomitant]

REACTIONS (7)
  - Anxiety [None]
  - Tension [None]
  - Agitation [None]
  - Thinking abnormal [None]
  - Aggression [None]
  - Mood altered [None]
  - Hostility [None]

NARRATIVE: CASE EVENT DATE: 20211012
